FAERS Safety Report 7887828-0 (Version None)
Quarter: 2011Q4

REPORT INFORMATION
  Report Type: 
  Country: None (occurrence: None)
  Receive Date: 20111101
  Receipt Date: 20111019
  Transmission Date: 20120403
  Serious: Yes (Disabling)
  Sender: FDA-Public Use
  Company Number: 2011P1009557

PATIENT
  Age: 23 Year
  Sex: Female
  Weight: 67.5 kg

DRUGS (10)
  1. CEPHALEXIN [Concomitant]
  2. GAVISCON [Concomitant]
  3. CYCLIZINE [Concomitant]
  4. METOCLOPRAMIDE [Concomitant]
  5. CLOMIPRAMINE HCL [Concomitant]
  6. ERYTHROMYCIN ETHYLSUCCINATE [Concomitant]
  7. LORAZEPAM [Concomitant]
  8. PROCHLORPERAZINE [Concomitant]
  9. ONDANSETRON [Suspect]
  10. CHLORDIAZEPDXIDE [Concomitant]

REACTIONS (1)
  - MORBID THOUGHTS [None]
